FAERS Safety Report 5339648-9 (Version None)
Quarter: 2007Q2

REPORT INFORMATION
  Report Type: 
  Country: None (occurrence: None)
  Receive Date: 20070525
  Receipt Date: 20070515
  Transmission Date: 20071010
  Serious: Yes (Hospitalization)
  Sender: FDA-Public Use
  Company Number: 2007-01403

PATIENT
  Age: 72 Year
  Sex: Female
  Weight: 137.3 kg

DRUGS (6)
  1. VELCADE [Suspect]
     Indication: MANTLE CELL LYMPHOMA
     Dosage: 6.40 MG,
     Dates: start: 20070329
  2. CYCLOPHOSPHAMIDE [Suspect]
     Indication: MANTLE CELL LYMPHOMA
     Dosage: 1875.00 MG
     Dates: start: 20070329
  3. DOXORUBICIN HCL [Suspect]
     Indication: MANTLE CELL LYMPHOMA
     Dosage: 125.00 MG,
     Dates: start: 20070329
  4. PREDNISONE [Suspect]
     Indication: MANTLE CELL LYMPHOMA
     Dosage: 500.00 MG
     Dates: start: 20070329, end: 20070424
  5. RITUXIMAB(RITUXIMAB) INJECTION, 375MG/M2 [Suspect]
     Indication: MANTLE CELL LYMPHOMA
     Dosage: 937.00 MG
     Dates: start: 20070329
  6. VINCRISTINE [Suspect]
     Indication: MANTLE CELL LYMPHOMA
     Dosage: 2.00 MG,
     Dates: start: 20070329

REACTIONS (3)
  - ARRHYTHMIA SUPRAVENTRICULAR [None]
  - ATRIAL FIBRILLATION [None]
  - NODAL ARRHYTHMIA [None]
